FAERS Safety Report 5422870-0 (Version None)
Quarter: 2007Q3

REPORT INFORMATION
  Report Type: 
  Country: None (occurrence: None)
  Receive Date: 20070727
  Receipt Date: 20070412
  Transmission Date: 20080115
  Serious: Yes (Life-Threatening, Hospitalization)
  Sender: FDA-Public Use
  Company Number: 260277

PATIENT
  Age: 55 Year
  Sex: Male
  Weight: 90 kg

DRUGS (7)
  1. LEVEMIR [Suspect]
     Indication: INSULIN-REQUIRING TYPE II DIABETES MELLITUS
     Dosage: SUBCUTANEOUS
     Route: 058
     Dates: start: 20070102, end: 20070101
  2. NOVOLOG [Suspect]
     Indication: INSULIN-REQUIRING TYPE II DIABETES MELLITUS
     Dosage: 5 IU, TID, SUBCUTANEOUS
     Route: 058
     Dates: end: 20070102
  3. INSULIN NPH (INSULIN ISOPHANE BOVIEN) SUSPENSION FOR INJECTION [Concomitant]
  4. ULTRAM [Concomitant]
  5. ACETYLSALICYLIC ACID SRT [Concomitant]
  6. LIPITOR [Concomitant]
  7. COREG [Concomitant]

REACTIONS (1)
  - ANAPHYLACTIC REACTION [None]
